FAERS Safety Report 7015217-X (Version None)
Quarter: 2010Q3

REPORT INFORMATION
  Report Type: 
  Country: None (occurrence: None)
  Receive Date: 20100927
  Receipt Date: 20100916
  Transmission Date: 20110219
  Serious: Yes (Other)
  Sender: FDA-Public Use
  Company Number: PHHY2010JP59831

PATIENT
  Age: 62 Year
  Sex: Female

DRUGS (1)
  1. GLEEVEC [Suspect]
     Indication: GASTROINTESTINAL STROMAL TUMOUR
     Route: 048

REACTIONS (5)
  - HEPATECTOMY [None]
  - MALIGNANT TUMOUR EXCISION [None]
  - METASTASES TO LIVER [None]
  - MYELOFIBROSIS [None]
  - PANCYTOPENIA [None]
